FAERS Safety Report 9063096 (Version 1)
Quarter: 2013Q1

REPORT INFORMATION
  Report Type: Report from Study
  Country: US (occurrence: US)
  Receive Date: 20130129
  Receipt Date: 20130129
  Transmission Date: 20140127
  Serious: No
  Sender: FDA-Public Use
  Company Number: US-ABBOTT-12P-163-0948700-00

PATIENT
  Age: 46 Year
  Sex: Female

DRUGS (3)
  1. HUMIRA 40 MG/0.8 ML PEN [Suspect]
     Indication: CROHN^S DISEASE
     Dates: start: 20120504
  2. CLARITIN [Concomitant]
     Indication: HYPERSENSITIVITY
     Dosage: DAILY AS NEEDED
  3. PARENTERAL NUTRITION [Concomitant]
     Indication: NUTRITIONAL SUPPLEMENTATION

REACTIONS (2)
  - Headache [Recovering/Resolving]
  - Dehydration [Recovering/Resolving]
